FAERS Safety Report 9857009 (Version 2)
Quarter: 2014Q1

REPORT INFORMATION
  Report Type: Spontaneous
  Country: GB (occurrence: GB)
  Receive Date: 20140130
  Receipt Date: 20140328
  Transmission Date: 20141002
  Serious: Yes (Other)
  Sender: FDA-Public Use
  Company Number: PHHY2014GB008676

PATIENT
  Sex: Female

DRUGS (2)
  1. LABETALOL [Suspect]
     Indication: GESTATIONAL HYPERTENSION
     Dosage: 100 MG, BID
  2. SYNTOCINON [Suspect]
     Indication: LABOUR INDUCTION

REACTIONS (5)
  - Raynaud^s phenomenon [Unknown]
  - Nipple pain [Unknown]
  - Breast pain [Unknown]
  - Skin discolouration [Unknown]
  - Maternal exposure during pregnancy [Unknown]
